FAERS Safety Report 15455021 (Version 1)
Quarter: 2018Q3

REPORT INFORMATION
  Report Type: Spontaneous
  Country: US (occurrence: US)
  Receive Date: 20180927
  Receipt Date: 20180927
  Transmission Date: 20181014
  Serious: Yes (Death, Hospitalization)
  Sender: FDA-Public Use
  Company Number: None

PATIENT
  Sex: Female
  Weight: 51.8 kg

DRUGS (4)
  1. DEXAMETHASONE. [Suspect]
     Active Substance: DEXAMETHASONE
     Dates: end: 20180807
  2. MITOXANTRONE [Concomitant]
     Active Substance: MITOXANTRONE HYDROCHLORIDE
     Dates: end: 20180718
  3. METHOTREXATE. [Concomitant]
     Active Substance: METHOTREXATE
     Dates: end: 20180730
  4. VINCRISTINE SULFATE. [Concomitant]
     Active Substance: VINCRISTINE SULFATE
     Dates: end: 20180804

REACTIONS (7)
  - Proctalgia [None]
  - Respiratory failure [None]
  - Orthostatic hypotension [None]
  - Lung infiltration [None]
  - Tachycardia [None]
  - Escherichia infection [None]
  - Pseudomonas infection [None]

NARRATIVE: CASE EVENT DATE: 20180807
